FAERS Safety Report 17360471 (Version 1)
Quarter: 2020Q1

REPORT INFORMATION
  Report Type: Spontaneous
  Country: US (occurrence: US)
  Receive Date: 20200131
  Receipt Date: 20200131
  Transmission Date: 20200409
  Serious: Yes (Disabling)
  Sender: FDA-Public Use
  Company Number: None

PATIENT
  Age: 80 Year
  Sex: Male
  Weight: 65.8 kg

DRUGS (1)
  1. CEFEPIME [Suspect]
     Active Substance: CEFEPIME HYDROCHLORIDE
     Indication: GAS GANGRENE
     Dosage: ?          OTHER FREQUENCY:Q8H;?
     Route: 042
     Dates: start: 20190926, end: 20191004

REACTIONS (3)
  - Blood creatinine increased [None]
  - Tubulointerstitial nephritis [None]
  - Haemodialysis [None]

NARRATIVE: CASE EVENT DATE: 20191007
